FAERS Safety Report 7517884-0 (Version None)
Quarter: 2011Q2

REPORT INFORMATION
  Report Type: 
  Country: None (occurrence: None)
  Receive Date: 20110602
  Receipt Date: 20110503
  Transmission Date: 20111010
  Serious: Yes (Hospitalization, Other)
  Sender: FDA-Public Use
  Company Number: US-BAYER-201025631NA

PATIENT
  Age: 15 Year
  Sex: Female
  Weight: 58.957 kg

DRUGS (14)
  1. YASMIN [Suspect]
     Indication: CONTRACEPTION
     Route: 048
     Dates: start: 20060501, end: 20070901
  2. PREDNISONE [Concomitant]
     Dosage: UNK
     Dates: start: 20080201
  3. ZITHROMAX [Concomitant]
     Dosage: UNK
     Dates: start: 20060701
  4. BELLA ALKALOIDS [Concomitant]
     Dosage: UNK
     Dates: start: 20070101
  5. TRAMADOL HCL [Concomitant]
     Dosage: UNK
     Dates: start: 20080101
  6. IBUPROFEN [Concomitant]
     Dosage: UNK UNK, PRN
     Dates: start: 20050101
  7. SINGULAIR [Concomitant]
     Dosage: UNK
     Dates: start: 20060701
  8. HYOSCYAMINE [Concomitant]
     Dosage: UNK
     Dates: start: 20070101
  9. YASMIN [Suspect]
     Indication: PREMENSTRUAL SYNDROME
  10. AMOXICILLIN [Concomitant]
     Dosage: UNK
     Dates: start: 20070101
  11. PAROXETINE HCL [Concomitant]
     Dosage: UNK
     Dates: start: 20080101
  12. YAZ [Suspect]
     Indication: CONTRACEPTION
     Route: 048
     Dates: start: 20070901, end: 20100101
  13. YAZ [Suspect]
     Indication: PREMENSTRUAL SYNDROME
  14. ANTICOAGULANTS [Concomitant]
     Indication: PULMONARY EMBOLISM

REACTIONS (9)
  - APPENDICITIS [None]
  - OEDEMA PERIPHERAL [None]
  - GALLBLADDER DISORDER [None]
  - DEPRESSION [None]
  - ABDOMINAL PAIN [None]
  - CHOLECYSTITIS CHRONIC [None]
  - PULMONARY EMBOLISM [None]
  - CHEST PAIN [None]
  - THROMBOPHLEBITIS [None]
